FAERS Safety Report 6096523-2 (Version None)
Quarter: 2009Q1

REPORT INFORMATION
  Report Type: 
  Country: None (occurrence: None)
  Receive Date: 20090227
  Receipt Date: 20090220
  Transmission Date: 20090719
  Serious: Yes (Hospitalization)
  Sender: FDA-Public Use
  Company Number: CH-WYE-G03161909

PATIENT
  Age: 42 Year
  Sex: Female

DRUGS (6)
  1. EFFEXOR [Interacting]
     Indication: DEPRESSION
     Route: 048
  2. ETHANOL [Concomitant]
  3. RITALIN [Concomitant]
     Route: 048
  4. LORAZEPAM [Suspect]
     Route: 048
     Dates: start: 20081029, end: 20081029
  5. SEROQUEL [Interacting]
     Indication: DEPRESSION
     Route: 048
  6. METHADONE HCL [Interacting]
     Route: 048

REACTIONS (3)
  - DRUG INTERACTION [None]
  - INTENTIONAL OVERDOSE [None]
  - RESTLESS LEGS SYNDROME [None]
